FAERS Safety Report 16611241 (Version 2)
Quarter: 2019Q3

REPORT INFORMATION
  Report Type: Spontaneous
  Country: US (occurrence: US)
  Receive Date: 20190722
  Receipt Date: 20190725
  Transmission Date: 20191004
  Serious: Yes (Other)
  Sender: FDA-Public Use
  Company Number: US-PFIZER INC-2019307758

PATIENT
  Age: 23 Year
  Sex: Female

DRUGS (5)
  1. CISPLATIN. [Suspect]
     Active Substance: CISPLATIN
     Indication: OVARIAN DYSGERMINOMA STAGE I
     Dosage: 40 MG/M2, CYCLIC ON DAYS 1-5
     Route: 042
     Dates: start: 201810
  2. BLEOMYCIN SULFATE [Suspect]
     Active Substance: BLEOMYCIN SULFATE
     Indication: OVARIAN DYSGERMINOMA STAGE I
     Dosage: 4 CYCLIC (15 UNITS/WK. ON DAYS 1, 8, AND 15).
     Route: 042
     Dates: start: 201810
  3. BACTRIM [Concomitant]
     Active Substance: SULFAMETHOXAZOLE\TRIMETHOPRIM
     Indication: COUGH
     Dosage: UNK
  4. ETOPOSIDE. [Suspect]
     Active Substance: ETOPOSIDE
     Indication: OVARIAN DYSGERMINOMA STAGE I
     Dosage: 120 MG/M2, CYCLIC
     Route: 042
     Dates: start: 201810
  5. BACTRIM [Concomitant]
     Active Substance: SULFAMETHOXAZOLE\TRIMETHOPRIM
     Indication: CELLULITIS

REACTIONS (1)
  - Pancytopenia [Recovering/Resolving]
